FAERS Safety Report 11368916 (Version 2)
Quarter: 2015Q3

REPORT INFORMATION
  Report Type: Spontaneous
  Country: US (occurrence: US)
  Receive Date: 20150812
  Receipt Date: 20150818
  Transmission Date: 20151125
  Serious: Yes (Other)
  Sender: FDA-Public Use
  Company Number: US-TEVA-585838ACC

PATIENT
  Age: 37 Year
  Sex: Female
  Weight: 84.9 kg

DRUGS (2)
  1. PARAGARD T 380A [Suspect]
     Active Substance: COPPER
     Indication: CONTRACEPTION
     Route: 015
     Dates: start: 20150623, end: 20150731
  2. PRENATAL VITAMIN [Concomitant]
     Active Substance: VITAMINS
     Indication: BREAST FEEDING
     Route: 065

REACTIONS (2)
  - Exposure during breast feeding [Unknown]
  - Device dislocation [Recovered/Resolved]

NARRATIVE: CASE EVENT DATE: 20150526
